FAERS Safety Report 4609557-9 (Version None)
Quarter: 2005Q1

REPORT INFORMATION
  Report Type: 
  Country: None (occurrence: None)
  Receive Date: 20050316
  Receipt Date: 20050224
  Transmission Date: 20050727
  Serious: Yes (Hospitalization)
  Sender: FDA-Public Use
  Company Number: CA-GLAXOSMITHKLINE-A0547642A

PATIENT
  Age: 32 Year
  Sex: Female
  Weight: 66.8 kg

DRUGS (8)
  1. TOSITUMOMAB [Suspect]
     Indication: NON-HODGKIN'S LYMPHOMA
     Route: 042
     Dates: start: 20050211
  2. IODINE I 131 TOSITUMOMAB [Suspect]
     Indication: NON-HODGKIN'S LYMPHOMA
     Route: 042
     Dates: start: 20050211
  3. TOSITUMOMAB [Suspect]
     Route: 042
     Dates: start: 20050225, end: 20050225
  4. IODINE I 131 TOSITUMOMAB [Suspect]
     Route: 042
     Dates: start: 20050225, end: 20050225
  5. BENADRYL [Concomitant]
  6. TYLENOL (CAPLET) [Concomitant]
  7. CELEXA [Concomitant]
  8. THYROSAFE [Concomitant]
     Indication: PROPHYLAXIS
     Dosage: 130MG PER DAY
     Route: 048
     Dates: start: 20050210, end: 20050222

REACTIONS (5)
  - ERYTHEMA [None]
  - PAIN [None]
  - PURPURA [None]
  - RASH GENERALISED [None]
  - VOMITING [None]
